FAERS Safety Report 12619332 (Version 1)
Quarter: 2016Q3

REPORT INFORMATION
  Report Type: Spontaneous
  Country: US (occurrence: US)
  Receive Date: 20160803
  Receipt Date: 20160803
  Transmission Date: 20161109
  Serious: No
  Sender: FDA-Public Use
  Company Number: US-BAYER-2016-147610

PATIENT
  Sex: Female

DRUGS (1)
  1. MIRENA [Suspect]
     Active Substance: LEVONORGESTREL
     Dosage: 20 MCG/24HR, CONT
     Route: 015
     Dates: start: 20160506, end: 20160711

REACTIONS (4)
  - Abdominal discomfort [None]
  - Abdominal pain lower [None]
  - Pain in extremity [None]
  - Adverse reaction [None]

NARRATIVE: CASE EVENT DATE: 2016
